FAERS Safety Report 11663796 (Version 1)
Quarter: 2015Q4

REPORT INFORMATION
  Report Type: Spontaneous
  Country: US (occurrence: None)
  Receive Date: 20151026
  Receipt Date: 20151026
  Transmission Date: 20160304
  Serious: Yes (Other)
  Sender: FDA-Public Use
  Company Number: None

PATIENT
  Age: 45 Year
  Weight: 136.08 kg

DRUGS (4)
  1. ZANTAC [Concomitant]
     Active Substance: RANITIDINE HYDROCHLORIDE
  2. CREST 3D WHITE BRILLIANCE DAILY CLEANSING AND WHITENING SYSTEM [Suspect]
     Active Substance: STANNOUS FLUORIDE
     Indication: DENTAL DISORDER PROPHYLAXIS
     Dates: start: 20151019, end: 20151022
  3. HYDROCODONE [Concomitant]
     Active Substance: HYDROCODONE
  4. COUMADIN [Concomitant]
     Active Substance: WARFARIN SODIUM

REACTIONS (3)
  - Ageusia [None]
  - Product formulation issue [None]
  - Oral discomfort [None]

NARRATIVE: CASE EVENT DATE: 20151023
